FAERS Safety Report 18043807 (Version 1)
Quarter: 2020Q3

REPORT INFORMATION
  Report Type: Spontaneous
  Country: US (occurrence: US)
  Receive Date: 20200718
  Receipt Date: 20200718
  Transmission Date: 20201103
  Serious: Yes (Other)
  Sender: FDA-Public Use
  Company Number: None

PATIENT
  Age: 67 Year
  Sex: Male
  Weight: 96.75 kg

DRUGS (6)
  1. ALLEGRA [Concomitant]
     Active Substance: FEXOFENADINE HYDROCHLORIDE
  2. SERTRALINE [Concomitant]
     Active Substance: SERTRALINE HYDROCHLORIDE
  3. MONTELUKAST SODIUM 10 MG TABLETS [Suspect]
     Active Substance: MONTELUKAST SODIUM
     Indication: DYSPNOEA
     Dosage: ?          QUANTITY:1 TABLET(S);?
     Route: 048
     Dates: start: 20200608, end: 20200712
  4. PRAVASTATIN. [Concomitant]
     Active Substance: PRAVASTATIN
  5. GABAPENTIN. [Concomitant]
     Active Substance: GABAPENTIN
  6. FOSINOPRIL [Concomitant]
     Active Substance: FOSINOPRIL

REACTIONS (4)
  - Agitation [None]
  - Anxiety [None]
  - Abnormal dreams [None]
  - Morose [None]

NARRATIVE: CASE EVENT DATE: 20200712
